FAERS Safety Report 4995496-0 (Version None)
Quarter: 2006Q2

REPORT INFORMATION
  Report Type: 
  Country: None (occurrence: None)
  Receive Date: 20060504
  Receipt Date: 20060421
  Transmission Date: 20061013
  Serious: Yes (Other)
  Sender: FDA-Public Use
  Company Number: 200610473BCC

PATIENT
  Age: 27 Year
  Sex: Female
  Weight: 102.0593 kg

DRUGS (2)
  1. ALEVE [Suspect]
     Indication: BACK PAIN
     Dosage: 440-880 MG, QD, ORAL
     Route: 048
     Dates: start: 20060122, end: 20060128
  2. ALEVE [Suspect]
     Indication: CHEST PAIN
     Dosage: 440-880 MG, QD, ORAL
     Route: 048
     Dates: start: 20060122, end: 20060128

REACTIONS (3)
  - ASTHMA [None]
  - CHEST PAIN [None]
  - CONDITION AGGRAVATED [None]
